FAERS Safety Report 8174670-9 (Version None)
Quarter: 2012Q1

REPORT INFORMATION
  Report Type: 
  Country: None (occurrence: None)
  Receive Date: 20120229
  Receipt Date: 20120223
  Transmission Date: 20120608
  Serious: Yes (Hospitalization)
  Sender: FDA-Public Use
  Company Number: US-GLAXOSMITHKLINE-A0651291A

PATIENT
  Age: 61 Year
  Sex: Male

DRUGS (9)
  1. AVANDIA [Suspect]
     Indication: DIABETES MELLITUS
     Dosage: 4MG PER DAY
     Route: 048
     Dates: start: 20010119, end: 20070530
  2. VIOXX [Concomitant]
  3. COUMADIN [Concomitant]
  4. ADVICOR [Concomitant]
  5. NEURONTIN [Concomitant]
  6. GLUCOTROL XL [Concomitant]
     Indication: PRODUCT USED FOR UNKNOWN INDICATION
  7. GLUCOTROL [Concomitant]
  8. METOPROLOL SUCCINATE [Concomitant]
  9. LOPRESSOR [Concomitant]

REACTIONS (6)
  - HYPOGLYCAEMIA [None]
  - BLINDNESS [None]
  - CEREBROVASCULAR ACCIDENT [None]
  - CYSTOID MACULAR OEDEMA [None]
  - WEIGHT INCREASED [None]
  - RETINAL VEIN OCCLUSION [None]
